FAERS Safety Report 8183668 (Version 2)
Quarter: 2013Q2

REPORT INFORMATION
  Report Type: Spontaneous
  Country: MX (occurrence: MX)
  Receive Date: 20111017
  Receipt Date: 20130404
  Transmission Date: 20140414
  Serious: Yes (Death)
  Sender: FDA-Public Use
  Company Number: PHHY2011MX90532

PATIENT
  Age: 54 Year
  Sex: Female

DRUGS (1)
  1. EXFORGE [Suspect]
     Indication: HYPERTENSION
     Dosage: 2 DF, (VALS160MG, AMLO 5MG) DAILY
     Route: 048
     Dates: end: 201104

REACTIONS (3)
  - Renal disorder [Fatal]
  - Diabetic complication [Fatal]
  - Oedema due to renal disease [Fatal]
